FAERS Safety Report 5903952-3 (Version None)
Quarter: 2008Q3

REPORT INFORMATION
  Report Type: 
  Country: None (occurrence: None)
  Receive Date: 20080919
  Receipt Date: 20080606
  Transmission Date: 20090109
  Serious: No
  Sender: FDA-Public Use
  Company Number: US-WYE-H04410008

PATIENT
  Age: 61 Year
  Sex: Male
  Weight: 81.72 kg

DRUGS (10)
  1. PRISTIQ [Suspect]
     Indication: DEPRESSION
     Dosage: 50 MG 1X PER 1 DAY, ORAL
     Route: 048
     Dates: start: 20080605
  2. PRISTIQ [Suspect]
     Indication: FATIGUE
     Dosage: 50 MG 1X PER 1 DAY, ORAL
     Route: 048
     Dates: start: 20080605
  3. CONCERTA [Suspect]
     Indication: FATIGUE
     Dosage: 36 MG
  4. RESTASIS (CYCLOSPORINE) [Concomitant]
  5. MEVACOR (LOUVASTATIN) [Concomitant]
  6. VERAPAMIL [Concomitant]
  7. TRENTAL [Concomitant]
  8. PLAVIX [Concomitant]
  9. ACETYLSALICYLIC ACID SRT [Concomitant]
  10. VALIUM [Concomitant]

REACTIONS (3)
  - DECREASED APPETITE [None]
  - INSOMNIA [None]
  - NAUSEA [None]
